FAERS Safety Report 9325877 (Version 5)
Quarter: 2013Q3

REPORT INFORMATION
  Report Type: Spontaneous
  Country: JP (occurrence: JP)
  Receive Date: 20130604
  Receipt Date: 20130930
  Transmission Date: 20140515
  Serious: Yes (Other)
  Sender: FDA-Public Use
  Company Number: JP-PFIZER INC-2013167762

PATIENT
  Age: 79 Year
  Sex: Female
  Weight: 55 kg

DRUGS (5)
  1. LYRICA [Suspect]
     Indication: PAIN
     Dosage: 25 MG, 1X/DAY
     Route: 048
     Dates: start: 20130522, end: 20130602
  2. CELECOX [Suspect]
     Indication: PAIN
     Dosage: 200 MG DAILY
     Route: 048
     Dates: start: 20130522, end: 20130602
  3. ONEALFA [Suspect]
     Indication: OSTEOPOROSIS
     Dosage: 2.5 UG, DAILY
     Route: 048
     Dates: start: 20130522, end: 20130602
  4. ALOSENN [Concomitant]
     Indication: CONSTIPATION
     Dosage: 1 G DAILY
     Route: 048
     Dates: start: 20130522, end: 20130602
  5. GASLON [Concomitant]
     Indication: GASTROINTESTINAL DISORDER
     Dosage: 4 MG DAILY
     Route: 048
     Dates: start: 20130522, end: 20130602

REACTIONS (2)
  - Rash generalised [Recovered/Resolved]
  - Pruritus [Recovered/Resolved]
